FAERS Safety Report 16441335 (Version 1)
Quarter: 2019Q2

REPORT INFORMATION
  Report Type: Report from Study
  Country: CO (occurrence: CO)
  Receive Date: 20190617
  Receipt Date: 20190617
  Transmission Date: 20190711
  Serious: Yes (Hospitalization, Other)
  Sender: FDA-Public Use
  Company Number: CO-ASTELLAS-2019US022504

PATIENT
  Age: 37 Year
  Sex: Female
  Weight: 52 kg

DRUGS (3)
  1. TACROLIMUS. [Suspect]
     Active Substance: TACROLIMUS
     Indication: RENAL TRANSPLANT
     Dosage: 3 MG, ONCE DAILY (1 CAPSULE OF 3 MG)
     Route: 048
     Dates: start: 20181110, end: 20190530
  2. PREDNISOLONE. [Concomitant]
     Active Substance: PREDNISOLONE
     Indication: RENAL TRANSPLANT
     Dosage: 100 MG (2 CAPSULES OF 50 MG), ONCE DAILY
     Route: 048
  3. MYCOPHENOLATE [Concomitant]
     Active Substance: MYCOPHENOLIC ACID
     Indication: RENAL TRANSPLANT
     Dosage: 720 MG (2 CAPSULES OF 360 MG), ONCE DAILY
     Route: 048

REACTIONS (6)
  - Diarrhoea [Recovered/Resolved]
  - Kidney transplant rejection [Not Recovered/Not Resolved]
  - Cytomegalovirus infection [Unknown]
  - Crystal urine present [Unknown]
  - Vomiting [Recovered/Resolved]
  - Renal transplant failure [Unknown]

NARRATIVE: CASE EVENT DATE: 20190521
